FAERS Safety Report 25779720 (Version 1)
Quarter: 2025Q3

REPORT INFORMATION
  Report Type: Spontaneous
  Country: EU (occurrence: EU)
  Receive Date: 20250909
  Receipt Date: 20250909
  Transmission Date: 20251020
  Serious: Yes (Hospitalization)
  Sender: MYLAN
  Company Number: EU-ROCHE-1184344

PATIENT
  Age: 55 Year
  Sex: Female
  Weight: 78 kg

DRUGS (14)
  1. DOCETAXEL [Suspect]
     Active Substance: DOCETAXEL
     Indication: Breast cancer
     Dosage: 192 MILLIGRAM, Q28D
     Dates: start: 20121114
  2. DOCETAXEL [Suspect]
     Active Substance: DOCETAXEL
  3. DOCETAXEL [Suspect]
     Active Substance: DOCETAXEL
  4. FLUOROURACIL [Suspect]
     Active Substance: FLUOROURACIL
     Indication: Breast cancer
     Dosage: 1000 MILLIGRAM, Q21D
     Dates: start: 20120905
  5. FLUOROURACIL [Suspect]
     Active Substance: FLUOROURACIL
  6. EPIRUBICIN [Suspect]
     Active Substance: EPIRUBICIN
     Indication: Breast cancer
     Dosage: 198 MILLIGRAM, Q21D
     Dates: start: 20120905
  7. EPIRUBICIN [Suspect]
     Active Substance: EPIRUBICIN
  8. TRASTUZUMAB [Suspect]
     Active Substance: TRASTUZUMAB
     Indication: Breast cancer
     Dates: start: 20121114, end: 20130206
  9. TRASTUZUMAB [Suspect]
     Active Substance: TRASTUZUMAB
  10. TRASTUZUMAB [Suspect]
     Active Substance: TRASTUZUMAB
  11. CYCLOPHOSPHAMIDE [Suspect]
     Active Substance: CYCLOPHOSPHAMIDE
     Indication: Breast cancer
     Dosage: 990 MILLIGRAM, Q21D
     Dates: start: 20120905
  12. CYCLOPHOSPHAMIDE [Suspect]
     Active Substance: CYCLOPHOSPHAMIDE
  13. PLAVIX [Concomitant]
     Active Substance: CLOPIDOGREL BISULFATE
     Dosage: UNK UNK, QD (1/ DAY)
  14. PROZAC [Concomitant]
     Active Substance: FLUOXETINE HYDROCHLORIDE
     Dosage: UNK UNK, QD (1/ DAY)

REACTIONS (2)
  - Hypokalaemia [Recovered/Resolved]
  - Ejection fraction decreased [Not Recovered/Not Resolved]

NARRATIVE: CASE EVENT DATE: 20130116
